FAERS Safety Report 8834290 (Version 1)
Quarter: 2012Q4

REPORT INFORMATION
  Report Type: Report from Study
  Country: DE (occurrence: DE)
  Receive Date: 20121010
  Receipt Date: 20121010
  Transmission Date: 20130627
  Serious: Yes (Hospitalization)
  Sender: FDA-Public Use
  Company Number: DE-BAXTER-2012BAX019029

PATIENT
  Age: 60 Year
  Sex: Male
  Weight: 92 kg

DRUGS (6)
  1. ENDOXAN 1G [Suspect]
     Indication: CHRONIC LYMPHOCYTIC LEUKAEMIA
     Route: 042
     Dates: start: 20101202
  2. ENDOXAN 1G [Suspect]
     Route: 042
     Dates: start: 20110421
  3. RITUXIMAB [Suspect]
     Indication: CHRONIC LYMPHOCYTIC LEUKAEMIA
     Dosage: 500 mg/kg
     Route: 042
     Dates: start: 20101201
  4. RITUXIMAB [Suspect]
     Route: 042
     Dates: start: 20110419
  5. FLUDARABINE [Suspect]
     Indication: CHRONIC LYMPHOCYTIC LEUKAEMIA
     Route: 042
     Dates: start: 20101202
  6. FLUDARABINE [Suspect]
     Route: 042
     Dates: start: 20110421

REACTIONS (3)
  - Sinusitis [Not Recovered/Not Resolved]
  - Pharyngitis [Not Recovered/Not Resolved]
  - Malignant neoplasm of unknown primary site [Not Recovered/Not Resolved]
